FAERS Safety Report 5857947-9 (Version None)
Quarter: 2008Q3

REPORT INFORMATION
  Report Type: 
  Country: None (occurrence: None)
  Receive Date: 20080825
  Receipt Date: 20080825
  Transmission Date: 20090109
  Serious: Yes (Death)
  Sender: FDA-Public Use
  Company Number: None

PATIENT
  Age: 61 Year
  Sex: Female
  Weight: 72.5755 kg

DRUGS (1)
  1. FENTANYL-100 [Suspect]
     Indication: MUSCLE SPASMS
     Dosage: 3 SHOTS 100MCG. FENTANLY 20 MIN 1000 MCG FENTANYL PATCH PUT ONE ON BACK TRANSDERMAL
     Route: 062
     Dates: start: 20060317, end: 20080318

REACTIONS (2)
  - CARDIAC FAILURE [None]
  - LOSS OF CONSCIOUSNESS [None]
